FAERS Safety Report 7277580-4 (Version None)
Quarter: 2011Q1

REPORT INFORMATION
  Report Type: 
  Country: None (occurrence: None)
  Receive Date: 20110207
  Receipt Date: 20110128
  Transmission Date: 20110831
  Serious: Yes (Other)
  Sender: FDA-Public Use
  Company Number: US-ASTRAZENECA-2011SE05367

PATIENT
  Age: 528 Month
  Sex: Male
  Weight: 100.7 kg

DRUGS (10)
  1. LITHIUM [Concomitant]
  2. LISINOPRIL [Concomitant]
  3. PLAVIX [Concomitant]
  4. CARVEDILOL [Concomitant]
  5. ULTRAM [Concomitant]
  6. SEROQUEL [Suspect]
     Indication: BIPOLAR I DISORDER
     Route: 048
  7. ZOLPIDEM [Concomitant]
  8. SIMVASTATIN [Concomitant]
  9. SEROQUEL [Suspect]
     Route: 048
  10. TRAZODONE [Concomitant]

REACTIONS (8)
  - FINGER AMPUTATION [None]
  - NERVE INJURY [None]
  - INSOMNIA [None]
  - DRUG DOSE OMISSION [None]
  - MYOCARDIAL INFARCTION [None]
  - THERAPEUTIC RESPONSE UNEXPECTED [None]
  - NO ADVERSE EVENT [None]
  - INCORRECT DOSE ADMINISTERED [None]
